FAERS Safety Report 8258723-2 (Version None)
Quarter: 2012Q2

REPORT INFORMATION
  Report Type: 
  Country: None (occurrence: None)
  Receive Date: 20120404
  Receipt Date: 20120404
  Transmission Date: 20120825
  Serious: Yes (Hospitalization)
  Sender: FDA-Public Use
  Company Number: None

PATIENT
  Age: 26 Year
  Sex: Female
  Weight: 52 kg

DRUGS (1)
  1. GAMMAGARD [Suspect]
     Indication: IMMUNODEFICIENCY COMMON VARIABLE
     Dosage: 40G
     Route: 042
     Dates: start: 20111227, end: 20120319

REACTIONS (1)
  - HAEMOGLOBIN DECREASED [None]
